FAERS Safety Report 4920797-1 (Version None)
Quarter: 2006Q1

REPORT INFORMATION
  Report Type: 
  Country: None (occurrence: None)
  Receive Date: 20060217
  Receipt Date: 20060208
  Transmission Date: 20060701
  Serious: Yes (Other)
  Sender: FDA-Public Use
  Company Number: US-2005-024261

PATIENT
  Age: 17 Year
  Sex: Female
  Weight: 64 kg

DRUGS (1)
  1. MAGNEVIST [Suspect]
     Indication: NUCLEAR MAGNETIC RESONANCE IMAGING BRAIN
     Dosage: 4 ML, 1 DOSE, INTRAVENOUS
     Route: 042
     Dates: start: 20051116, end: 20051116

REACTIONS (2)
  - CONVULSION [None]
  - IODINE ALLERGY [None]
